FAERS Safety Report 8929173 (Version 1)
Quarter: 2012Q4

REPORT INFORMATION
  Report Type: Spontaneous
  Country: US (occurrence: None)
  Receive Date: 20121126
  Receipt Date: 20121126
  Transmission Date: 20130627
  Serious: Yes (Other)
  Sender: FDA-Public Use
  Company Number: None

PATIENT
  Sex: Male
  Weight: 89.36 kg

DRUGS (1)
  1. ZETIA [Suspect]
     Indication: CHOLESTEROL HIGH
     Dosage: one tablet every 2nd day
     Route: 048
     Dates: start: 2010, end: 2012

REACTIONS (1)
  - Myalgia [None]
